FAERS Safety Report 8975607 (Version 2)
Quarter: 2014Q2

REPORT INFORMATION
  Report Type: Spontaneous
  Country: IN (occurrence: IN)
  Receive Date: 20121219
  Receipt Date: 20131018
  Transmission Date: 20141212
  Serious: Yes (Death)
  Sender: FDA-Public Use
  Company Number: IN-PFIZER INC-2012318152

PATIENT
  Age: 60 Year
  Sex: Male

DRUGS (2)
  1. LINEZOLID [Suspect]
     Indication: STAPHYLOCOCCAL INFECTION
     Dosage: 600 MG, 2X/DAY
     Route: 048
  2. VANCOMYCIN HCL [Suspect]
     Indication: STAPHYLOCOCCAL INFECTION
     Dosage: 1 G, 3X/DAY
     Route: 042

REACTIONS (2)
  - Drug ineffective [Fatal]
  - CNS ventriculitis [Fatal]
